FAERS Safety Report 6304546-0 (Version None)
Quarter: 2009Q3

REPORT INFORMATION
  Report Type: 
  Country: None (occurrence: None)
  Receive Date: 20090811
  Receipt Date: 20090810
  Transmission Date: 20100115
  Serious: No
  Sender: FDA-Public Use
  Company Number: US-B.I. PHARMACEUTICALS,INC./RIDGEFIELD-2008-BP-09353BP

PATIENT
  Sex: Male

DRUGS (4)
  1. FLOMAX [Suspect]
     Indication: BENIGN PROSTATIC HYPERPLASIA
     Dosage: 0.4 MG
     Route: 048
     Dates: start: 20060101
  2. FINASTERIDE [Concomitant]
     Indication: BENIGN PROSTATIC HYPERPLASIA
  3. CILOSTAZOL [Concomitant]
     Indication: INTERMITTENT CLAUDICATION
  4. CARDURA [Concomitant]

REACTIONS (6)
  - BLADDER OBSTRUCTION [None]
  - CYSTITIS [None]
  - DRUG INEFFECTIVE [None]
  - DYSURIA [None]
  - URINARY RETENTION [None]
  - URINE FLOW DECREASED [None]
